FAERS Safety Report 8941539 (Version 2)
Quarter: 2014Q2

REPORT INFORMATION
  Report Type: Spontaneous
  Country: US (occurrence: US)
  Receive Date: 20121203
  Receipt Date: 20131018
  Transmission Date: 20141212
  Serious: Yes (Congenital Anomaly, Other)
  Sender: FDA-Public Use
  Company Number: US-PFIZER INC-2012302096

PATIENT
  Sex: Female

DRUGS (2)
  1. PHENYTOIN [Suspect]
     Route: 064
  2. CARBAMAZEPINE [Concomitant]
     Route: 064

REACTIONS (2)
  - Maternal exposure timing unspecified [Unknown]
  - Encephalocele [Unknown]
